FAERS Safety Report 9496603 (Version 1)
Quarter: 2013Q3

REPORT INFORMATION
  Report Type: Spontaneous
  Country: JP (occurrence: None)
  Receive Date: 20130828
  Receipt Date: 20130828
  Transmission Date: 20140515
  Serious: Yes (Hospitalization)
  Sender: FDA-Public Use
  Company Number: TCI2013A05016

PATIENT
  Age: 80 Year
  Sex: Male

DRUGS (2)
  1. NESINA [Suspect]
     Indication: DIABETES MELLITUS
     Dosage: 25MG (25MG, 1 IN 1D)
     Route: 048
     Dates: start: 201210, end: 20130820
  2. LIOVEL [Suspect]
     Dosage: 1 TAB (1 TAB, 1 IN 1D)
     Route: 048
     Dates: end: 20130820

REACTIONS (1)
  - Pancreatitis acute [None]
